FAERS Safety Report 14085430 (Version 1)
Quarter: 2017Q4

REPORT INFORMATION
  Report Type: Report from Study
  Country: JP (occurrence: JP)
  Receive Date: 20171013
  Receipt Date: 20171013
  Transmission Date: 20180321
  Serious: Yes (Hospitalization)
  Sender: FDA-Public Use
  Company Number: JP-VIFOR (INTERNATIONAL) INC.-VIT-2017-10416

PATIENT
  Age: 67 Year
  Sex: Male
  Weight: 79.9 kg

DRUGS (4)
  1. NEOPHAGEN [Concomitant]
     Active Substance: GLYCYRRHIZIN
  2. EPOETIN ALFA BS [Concomitant]
     Active Substance: ERYTHROPOIETIN
  3. VELPHORO [Suspect]
     Active Substance: FERRIC OXYHYDROXIDE
     Indication: PRODUCT USED FOR UNKNOWN INDICATION
     Route: 048
     Dates: start: 20161128, end: 20170123
  4. ROCALTROL [Concomitant]
     Active Substance: CALCITRIOL
     Route: 048
     Dates: end: 20161205

REACTIONS (7)
  - Erythema [Unknown]
  - Condition aggravated [Unknown]
  - Large intestine polyp [Unknown]
  - Rash generalised [Unknown]
  - Rash [Recovered/Resolved]
  - Drug eruption [Unknown]
  - Lumbar spinal stenosis [Unknown]

NARRATIVE: CASE EVENT DATE: 2017
